FAERS Safety Report 4437563-6 (Version None)
Quarter: 2004Q3

REPORT INFORMATION
  Report Type: 
  Country: None (occurrence: None)
  Receive Date: 20040830
  Receipt Date: 20040830
  Transmission Date: 20050211
  Serious: Yes (Hospitalization)
  Sender: FDA-Public Use
  Company Number: None

PATIENT
  Age: 84 Year
  Sex: Female
  Weight: 78 kg

DRUGS (10)
  1. GATIFLOXACIN [Suspect]
     Dosage: 400 MG QD BY MOUTH
     Route: 048
     Dates: start: 20040409, end: 20040415
  2. AZITHROMYCIN [Suspect]
     Dosage: 500 MG Q 24 HRS INTRAVENOUS
     Route: 042
     Dates: start: 20040409, end: 20040415
  3. IPATROPIUM BROMIDE [Concomitant]
  4. ALBUTEROL [Concomitant]
  5. MULTI-VITAMIN [Concomitant]
  6. THIAMINE HCL [Concomitant]
  7. METOPROLOL TARTRATE [Concomitant]
  8. ACETAMINOPHEN [Concomitant]
  9. DM/GUAIFENESIN [Concomitant]
  10. PREDNISONE [Concomitant]

REACTIONS (1)
  - DIARRHOEA [None]
